FAERS Safety Report 8347614-4 (Version None)
Quarter: 2012Q2

REPORT INFORMATION
  Report Type: 
  Country: None (occurrence: None)
  Receive Date: 20120509
  Receipt Date: 20120425
  Transmission Date: 20120825
  Serious: Yes (Death)
  Sender: FDA-Public Use
  Company Number: JP-ELI_LILLY_AND_COMPANY-JP201204004008

PATIENT
  Age: 75 Year
  Sex: Female

DRUGS (6)
  1. CINACALCET HYDROCHLORIDE [Concomitant]
     Dosage: 75 MG, QD
     Route: 048
  2. CLINORIL [Concomitant]
     Dosage: 1 DF, BID
     Route: 048
  3. SHINLUCK [Concomitant]
     Indication: CONSTIPATION
     Dosage: UNK, PRN
     Route: 048
  4. ZYPREXA [Suspect]
     Indication: SCHIZOPHRENIA
     Route: 048
  5. FOSRENOL [Concomitant]
     Dosage: 750 MG, TID
     Route: 048
  6. YOKUKAN-SAN [Concomitant]
     Dosage: 2.5 G, TID
     Route: 048

REACTIONS (2)
  - DEATH [None]
  - BLOOD PRESSURE DECREASED [None]
